FAERS Safety Report 24002719 (Version 1)
Quarter: 2024Q2

REPORT INFORMATION
  Report Type: Spontaneous
  Country: US (occurrence: US)
  Receive Date: 20240624
  Receipt Date: 20240624
  Transmission Date: 20240717
  Serious: No
  Sender: FDA-Public Use
  Company Number: US-STRIDES ARCOLAB LIMITED-2024SP003937

PATIENT
  Sex: Female

DRUGS (11)
  1. METFORMIN [Suspect]
     Active Substance: METFORMIN HYDROCHLORIDE
     Indication: Weight decreased
     Dosage: UNK
     Route: 065
  2. GABAPENTIN [Suspect]
     Active Substance: GABAPENTIN
     Indication: Anxiety
     Dosage: UNK
     Route: 065
     Dates: start: 2022
  3. SEMAGLUTIDE [Concomitant]
     Active Substance: SEMAGLUTIDE
     Indication: Weight decreased
     Dosage: 2.4 MILLIGRAM, ONCE A WEEK
     Route: 065
     Dates: start: 2022, end: 2023
  4. METOPROLOL [Concomitant]
     Active Substance: METOPROLOL
     Indication: Product used for unknown indication
     Dosage: UNK
     Route: 065
     Dates: start: 2022
  5. TOPIRAMATE [Concomitant]
     Active Substance: TOPIRAMATE
     Indication: Migraine
     Dosage: UNK
     Route: 065
     Dates: start: 2022
  6. ARIPIPRAZOLE [Concomitant]
     Active Substance: ARIPIPRAZOLE
     Indication: Depression
     Dosage: UNK
     Route: 065
     Dates: start: 2022
  7. PHENTERMINE [Concomitant]
     Active Substance: PHENTERMINE
     Indication: Weight decreased
     Dosage: UNK
     Route: 065
  8. PHENTERMINE;TOPIRAMATE [Concomitant]
     Indication: Weight decreased
     Dosage: UNK
     Route: 065
  9. ORLISTAT [Concomitant]
     Active Substance: ORLISTAT
     Indication: Weight decreased
     Dosage: UNK
     Route: 065
  10. CARAPICHEA IPECACUANHA [Concomitant]
     Indication: Product used for unknown indication
     Dosage: UNK
     Route: 065
  11. CAFFEINE [Concomitant]
     Active Substance: CAFFEINE
     Indication: Product used for unknown indication
     Dosage: UNK
     Route: 065

REACTIONS (1)
  - Off label use [Unknown]

NARRATIVE: CASE EVENT DATE: 20220101
